FAERS Safety Report 9679441 (Version 1)
Quarter: 2013Q4

REPORT INFORMATION
  Report Type: Spontaneous
  Country: US (occurrence: US)
  Receive Date: 20131109
  Receipt Date: 20131109
  Transmission Date: 20140711
  Serious: No
  Sender: FDA-Public Use
  Company Number: US-SANOFI-AVENTIS-2013SA046738

PATIENT
  Sex: Female

DRUGS (3)
  1. ALLEGRA [Suspect]
     Indication: URTICARIA
     Route: 065
  2. ALLEGRA [Suspect]
     Indication: URTICARIA
     Route: 065
  3. ALLEGRA-D [Suspect]
     Route: 048

REACTIONS (4)
  - Localised infection [Unknown]
  - Product packaging issue [Unknown]
  - Drug ineffective [Unknown]
  - Wrong drug administered [Unknown]
